FAERS Safety Report 4375064-4 (Version None)
Quarter: 2004Q2

REPORT INFORMATION
  Report Type: 
  Country: None (occurrence: None)
  Receive Date: 20040603
  Receipt Date: 20040526
  Transmission Date: 20050107
  Serious: Yes (Life-Threatening, Hospitalization)
  Sender: FDA-Public Use
  Company Number: BE-JNJFOC-20040506689

PATIENT
  Age: 65 Year
  Sex: Male

DRUGS (2)
  1. REOPRO [Suspect]
     Indication: MYOCARDIAL INFARCTION
     Dosage: INTRAVENOUS
     Route: 042
     Dates: start: 20040524
  2. ENOXAPARIN SODIUM [Concomitant]

REACTIONS (3)
  - CARDIAC ARREST [None]
  - CARDIAC TAMPONADE [None]
  - MYOCARDIAL HAEMORRHAGE [None]
